FAERS Safety Report 22852708 (Version 3)
Quarter: 2023Q4

REPORT INFORMATION
  Report Type: Spontaneous
  Country: BR (occurrence: BR)
  Receive Date: 20230823
  Receipt Date: 20231113
  Transmission Date: 20240109
  Serious: Yes (Other)
  Sender: FDA-Public Use
  Company Number: BR-BoehringerIngelheim-2023-BI-256749

PATIENT
  Age: 67 Year
  Sex: Female
  Weight: 90 kg

DRUGS (13)
  1. JARDIANCE [Suspect]
     Active Substance: EMPAGLIFLOZIN
     Indication: Diabetes mellitus
     Dosage: 1 TABLET ONCE A DAY
     Route: 048
     Dates: start: 202301, end: 20230809
  2. PREDNISONE [Suspect]
     Active Substance: PREDNISONE
     Indication: Erythema
     Route: 048
     Dates: start: 20230809, end: 20230814
  3. PREDNISONE [Suspect]
     Active Substance: PREDNISONE
     Route: 048
     Dates: start: 20230815
  4. PREDNISONE [Suspect]
     Active Substance: PREDNISONE
  5. PREDNISONE [Suspect]
     Active Substance: PREDNISONE
     Dosage: ALTERNATE DAYS (WEANING OFF THE MEDICINE)
  6. PREDNISONE [Suspect]
     Active Substance: PREDNISONE
  7. LEVOTHYROXINE [Concomitant]
     Active Substance: LEVOTHYROXINE
     Indication: Thyroid disorder
     Route: 048
  8. ASPIRIN [Concomitant]
     Active Substance: ASPIRIN
     Indication: Diabetes prophylaxis
     Route: 048
  9. ROSUVASTATIN [Concomitant]
     Active Substance: ROSUVASTATIN
     Indication: Prophylaxis
     Route: 048
  10. METFORMIN HYDROCHLORIDE [Concomitant]
     Active Substance: METFORMIN HYDROCHLORIDE
     Indication: Diabetes mellitus
     Route: 048
  11. INSULIN HUMAN [Concomitant]
     Active Substance: INSULIN HUMAN
     Indication: Diabetes mellitus
     Dosage: 25 IU IN THE MORNING AND 15 IU IN THE EVENING.
     Dates: end: 2023
  12. INSULIN HUMAN [Concomitant]
     Active Substance: INSULIN HUMAN
     Dosage: 30UI IN THE MORNING AND 15UI IN THE EVENING.
     Dates: start: 2023
  13. INSULIN HUMAN [Concomitant]
     Active Substance: INSULIN HUMAN
     Dosage: 25 IU IN THE MORNING AND 15 IU IN THE EVENING.
     Dates: end: 2023

REACTIONS (19)
  - Drug-induced liver injury [Recovered/Resolved]
  - Erythema [Recovered/Resolved]
  - Erythema [Recovered/Resolved]
  - Skin discolouration [Recovered/Resolved]
  - Erythema [Recovered/Resolved]
  - Extravasation blood [Recovered/Resolved]
  - Pruritus [Recovered/Resolved]
  - Paraesthesia [Recovered/Resolved]
  - Skin disorder [Recovered/Resolved]
  - Skin discolouration [Recovered/Resolved]
  - Skin burning sensation [Recovered/Resolved]
  - Skin exfoliation [Recovered/Resolved]
  - Swelling face [Recovered/Resolved]
  - Skin discolouration [Recovered/Resolved]
  - Feeling hot [Recovered/Resolved]
  - Facial pain [Recovered/Resolved]
  - Skin atrophy [Recovered/Resolved]
  - Rash macular [Recovered/Resolved]
  - Drug ineffective [Recovered/Resolved]

NARRATIVE: CASE EVENT DATE: 20230806
